FAERS Safety Report 5295666-0 (Version None)
Quarter: 2007Q2

REPORT INFORMATION
  Report Type: 
  Country: None (occurrence: None)
  Receive Date: 20070410
  Receipt Date: 20070410
  Transmission Date: 20071010
  Serious: Yes (Death)
  Sender: FDA-Public Use
  Company Number: None

PATIENT
  Sex: Male
  Weight: 72.5755 kg

DRUGS (2)
  1. METHADONE HCL [Suspect]
     Indication: PAIN
  2. SOMA [Suspect]

REACTIONS (1)
  - DEATH [None]
